FAERS Safety Report 7370126-1 (Version None)
Quarter: 2011Q1

REPORT INFORMATION
  Report Type: 
  Country: None (occurrence: None)
  Receive Date: 20110323
  Receipt Date: 20110310
  Transmission Date: 20110831
  Serious: Yes (Other)
  Sender: FDA-Public Use
  Company Number: PHHY2010BR56713

PATIENT
  Sex: Male

DRUGS (5)
  1. RASILEZ HCT [Suspect]
     Dosage: 320/12.5 MG
     Route: 048
  2. SUSTRATE [Concomitant]
     Dosage: UNK
  3. SIMVASTATIN [Concomitant]
  4. DIOVAN AMLO FIX [Suspect]
     Dosage: 320/5 MG
     Route: 048
  5. HIDRION [Concomitant]

REACTIONS (3)
  - HYPERTENSION [None]
  - CARDIAC DISORDER [None]
  - SPEECH DISORDER [None]
